FAERS Safety Report 7094568-7 (Version None)
Quarter: 2010Q4

REPORT INFORMATION
  Report Type: 
  Country: None (occurrence: None)
  Receive Date: 20101110
  Receipt Date: 20101108
  Transmission Date: 20110411
  Serious: Yes (Other)
  Sender: FDA-Public Use
  Company Number: JP-PFIZER INC-2010143231

PATIENT
  Age: 70 Year
  Sex: Female

DRUGS (2)
  1. ZYVOX [Suspect]
     Indication: MYELITIS
     Dosage: UNK
     Route: 041
     Dates: start: 20101012, end: 20101104
  2. ZYVOX [Suspect]
     Dosage: UNK
     Route: 048
     Dates: start: 20101105

REACTIONS (3)
  - HYPONATRAEMIA [None]
  - NAUSEA [None]
  - VOMITING [None]
